FAERS Safety Report 22361601 (Version 2)
Quarter: 2023Q2

REPORT INFORMATION
  Report Type: Report from Study
  Country: US (occurrence: US)
  Receive Date: 20230524
  Receipt Date: 20230530
  Transmission Date: 20230722
  Serious: Yes (Hospitalization, Other)
  Sender: FDA-Public Use
  Company Number: US-PFIZER INC-US-GBT-021835

PATIENT
  Age: 21 Year
  Sex: Female

DRUGS (1)
  1. OXBRYTA [Suspect]
     Active Substance: VOXELOTOR
     Indication: Sickle cell disease
     Dosage: 1500 MG, 1X/DAY
     Route: 048
     Dates: start: 20230217

REACTIONS (6)
  - Sickle cell anaemia with crisis [Unknown]
  - Haemoglobin abnormal [Unknown]
  - Haemoglobin decreased [Unknown]
  - Pain [Not Recovered/Not Resolved]
  - Sickle cell anaemia with crisis [Unknown]
  - Abdominal pain upper [Unknown]

NARRATIVE: CASE EVENT DATE: 20230101
